FAERS Safety Report 12278514 (Version 1)
Quarter: 2016Q2

REPORT INFORMATION
  Report Type: Report from Study
  Country: US (occurrence: US)
  Receive Date: 20160418
  Receipt Date: 20160418
  Transmission Date: 20160815
  Serious: Yes (Hospitalization, Other)
  Sender: FDA-Public Use
  Company Number: US-UCBSA-2015042426

PATIENT
  Age: 55 Year
  Sex: Female
  Weight: 104 kg

DRUGS (4)
  1. KEPPRA [Suspect]
     Active Substance: LEVETIRACETAM
     Indication: PRODUCT USED FOR UNKNOWN INDICATION
     Dosage: UNK
     Dates: start: 20151014, end: 20160129
  2. LACOSAMIDE. [Suspect]
     Active Substance: LACOSAMIDE
     Indication: SEIZURE
     Dosage: 200 MG, 2X/DAY (BID)
     Dates: start: 201212
  3. PHENOBARBITAL. [Concomitant]
     Active Substance: PHENOBARBITAL
     Dosage: UNK
     Dates: start: 201508, end: 20151014
  4. PHENOBARBITAL. [Concomitant]
     Active Substance: PHENOBARBITAL
     Indication: PRODUCT USED FOR UNKNOWN INDICATION
     Dosage: UNK
     Dates: end: 20121219

REACTIONS (5)
  - Seizure [Recovered/Resolved]
  - Fall [Unknown]
  - Drug ineffective [Unknown]
  - Pneumonia [Unknown]
  - Breast cancer [Unknown]

NARRATIVE: CASE EVENT DATE: 201311
